FAERS Safety Report 10642409 (Version 1)
Quarter: 2014Q4

REPORT INFORMATION
  Report Type: Spontaneous
  Country: US (occurrence: None)
  Receive Date: 20141121
  Receipt Date: 20141121
  Transmission Date: 20150529
  Serious: No
  Sender: FDA-Public Use
  Company Number: 163-10004-14090599

PATIENT
  Age: 62 Year
  Sex: Female
  Weight: 97.98 kg

DRUGS (8)
  1. SYNTHROID (LEVOTHYROXINE SODIUM) (UNKNOWN) [Concomitant]
  2. AMARYL (GLIMEPIRIDE) (UNKNOWN) [Concomitant]
  3. BUSPAR (BUSPIRONE HYDROCHLORIDE) (UNKNOWN) [Concomitant]
  4. PREVACID (LANSOPRAZOLE) (UNKNOWN) [Concomitant]
  5. ZANTAC (RANITIDINE HYDROCHLORIDE) (UNKNOWN) [Concomitant]
  6. OTEZLA [Suspect]
     Active Substance: APREMILAST
     Indication: PSORIATIC ARTHROPATHY
     Dosage: 60 MG, 2 IN 1 D, PO
     Route: 048
     Dates: start: 2014
  7. HYZAAR (HYZAAR) (UNKNOWN) [Concomitant]
  8. TRAZODONE [Concomitant]
     Active Substance: TRAZODONE HYDROCHLORIDE

REACTIONS (1)
  - Diarrhoea [None]

NARRATIVE: CASE EVENT DATE: 2014
